FAERS Safety Report 18404843 (Version 2)
Quarter: 2021Q1

REPORT INFORMATION
  Report Type: Spontaneous
  Country: US (occurrence: US)
  Receive Date: 20201020
  Receipt Date: 20210309
  Transmission Date: 20210419
  Serious: Yes (Other)
  Sender: FDA-Public Use
  Company Number: US-SHIRE-US202034313

PATIENT
  Age: 44 Year

DRUGS (6)
  1. TAKHZYRO [Suspect]
     Active Substance: LANADELUMAB-FLYO
     Dosage: 30 MILLILITER, 2X A WEEK
     Route: 058
     Dates: start: 20181030
  2. FIRAZYR [Suspect]
     Active Substance: ICATIBANT ACETATE
     Indication: HEREDITARY ANGIOEDEMA
     Dosage: 30 MILLILITER, AS REQ^D
     Route: 058
     Dates: start: 20160420
  3. FIRAZYR [Suspect]
     Active Substance: ICATIBANT ACETATE
     Indication: HEREDITARY ANGIOEDEMA
     Dosage: 30 MILLILITER, AS REQ^D
     Route: 058
     Dates: start: 20160420
  4. FIRAZYR [Suspect]
     Active Substance: ICATIBANT ACETATE
     Dosage: 30 MILLIGRAM, PRN
     Route: 058
     Dates: start: 20160604
  5. FIRAZYR [Suspect]
     Active Substance: ICATIBANT ACETATE
     Dosage: 30 MILLIGRAM, PRN
     Route: 058
     Dates: start: 20160604
  6. TAKHZYRO [Suspect]
     Active Substance: LANADELUMAB-FLYO
     Indication: HEREDITARY ANGIOEDEMA
     Dosage: 300 MILLIGRAM, Q2WEEKS
     Route: 058
     Dates: start: 20181028

REACTIONS (4)
  - COVID-19 [Recovered/Resolved]
  - Neuropathy peripheral [Not Recovered/Not Resolved]
  - Hereditary angioedema [Recovered/Resolved]
  - Sacralisation [Not Recovered/Not Resolved]

NARRATIVE: CASE EVENT DATE: 20201001
